FAERS Safety Report 19030778 (Version 1)
Quarter: 2021Q1

REPORT INFORMATION
  Report Type: Spontaneous
  Country: US (occurrence: US)
  Receive Date: 20210317
  Receipt Date: 20210317
  Transmission Date: 20210420
  Serious: No
  Sender: FDA-Public Use
  Company Number: None

PATIENT
  Age: 33 Year
  Sex: Female

DRUGS (1)
  1. SOFOSBUVIR AND VELPATASVIR [Suspect]
     Active Substance: SOFOSBUVIR\VELPATASVIR
     Dosage: OTHER DOSE:400?100MG;?
     Route: 048
     Dates: start: 20210101, end: 20210128

REACTIONS (3)
  - Joint dislocation [None]
  - Blood blister [None]
  - Rash [None]

NARRATIVE: CASE EVENT DATE: 20210125
